FAERS Safety Report 13402371 (Version 1)
Quarter: 2017Q2

REPORT INFORMATION
  Report Type: Spontaneous
  Country: FR (occurrence: FR)
  Receive Date: 20170404
  Receipt Date: 20170404
  Transmission Date: 20170830
  Serious: Yes (Other)
  Sender: FDA-Public Use
  Company Number: FR-PFIZER INC-2017143020

PATIENT
  Sex: Female

DRUGS (1)
  1. CORDARONE [Suspect]
     Active Substance: AMIODARONE HYDROCHLORIDE
     Indication: ARRHYTHMIA
     Dosage: 200 MG, DAILY
     Route: 048
     Dates: start: 2014

REACTIONS (2)
  - Interstitial lung disease [Not Recovered/Not Resolved]
  - Scan abdomen abnormal [Not Recovered/Not Resolved]

NARRATIVE: CASE EVENT DATE: 201703
